FAERS Safety Report 6020313-X (Version None)
Quarter: 2008Q4

REPORT INFORMATION
  Report Type: 
  Country: None (occurrence: None)
  Receive Date: 20081226
  Receipt Date: 20081218
  Transmission Date: 20090506
  Serious: Yes (Hospitalization)
  Sender: FDA-Public Use
  Company Number: JP-BAYER-200813059BYL

PATIENT
  Age: 74 Year
  Sex: Male

DRUGS (1)
  1. ASPIRIN [Suspect]
     Indication: LACUNAR INFARCTION
     Route: 048

REACTIONS (3)
  - ANAEMIA [None]
  - CEREBRAL INFARCTION [None]
  - GASTROINTESTINAL HAEMORRHAGE [None]
